FAERS Safety Report 7156339-2 (Version None)
Quarter: 2010Q4

REPORT INFORMATION
  Report Type: 
  Country: None (occurrence: None)
  Receive Date: 20101130
  Receipt Date: 20101117
  Transmission Date: 20110411
  Serious: Yes (Hospitalization, Other)
  Sender: FDA-Public Use
  Company Number: 010893

PATIENT
  Age: 41 Year
  Sex: Female

DRUGS (12)
  1. SAMSCA [Suspect]
     Indication: HYPONATRAEMIA
     Dosage: 50 MG, DAILY DOSE, ORAL
     Route: 048
     Dates: start: 20100830
  2. TOPAMAX [Concomitant]
  3. SEROQUEL [Concomitant]
  4. PROZAC [Concomitant]
  5. RITALIN UNK (METHYLPHENIDATE HYDROCHLORIDE) [Concomitant]
  6. SODIUM BICARBONATE IN PLASTIC CONTAINER [Concomitant]
  7. ABILIFY [Concomitant]
  8. FERROUS SULFATE TAB [Concomitant]
  9. PROTONIX [Concomitant]
  10. WELLBUTRIN [Concomitant]
  11. ATERAX (HYDROXYZINE HYDROCHLORIDE) [Concomitant]
  12. TYLENOL USA (PARACETAMOL) [Concomitant]

REACTIONS (4)
  - ASTHENIA [None]
  - FATIGUE [None]
  - HEADACHE [None]
  - RAPID CORRECTION OF HYPONATRAEMIA [None]
